FAERS Safety Report 7369393-X (Version None)
Quarter: 2011Q1

REPORT INFORMATION
  Report Type: 
  Country: None (occurrence: None)
  Receive Date: 20110321
  Receipt Date: 20110321
  Transmission Date: 20110831
  Serious: Yes (Life-Threatening, Hospitalization, Other)
  Sender: FDA-Public Use
  Company Number: None

PATIENT
  Age: 72 Year
  Sex: Male
  Weight: 92.9874 kg

DRUGS (1)
  1. ALBUTEROL [Suspect]
     Indication: PNEUMONIA
     Dosage: ONE TIME
     Dates: start: 20110302, end: 20110302

REACTIONS (1)
  - ATRIAL FIBRILLATION [None]
